FAERS Safety Report 8099450-4 (Version None)
Quarter: 2012Q1

REPORT INFORMATION
  Report Type: 
  Country: None (occurrence: None)
  Receive Date: 20120129
  Receipt Date: 20111006
  Transmission Date: 20120608
  Serious: No
  Sender: FDA-Public Use
  Company Number: US-ABBOTT-11P-163-0861733-00

PATIENT
  Age: 45 Year
  Sex: Female

DRUGS (2)
  1. HUMIRA [Suspect]
     Indication: CROHN'S DISEASE
  2. VITAMIN B-12 [Concomitant]
     Indication: PRODUCT USED FOR UNKNOWN INDICATION
     Route: 050

REACTIONS (10)
  - VISUAL IMPAIRMENT [None]
  - RASH MACULAR [None]
  - SKIN BURNING SENSATION [None]
  - ARTHRALGIA [None]
  - BONE PAIN [None]
  - FATIGUE [None]
  - PRURITUS [None]
  - PAIN OF SKIN [None]
  - MYALGIA [None]
  - SKIN EXFOLIATION [None]
